FAERS Safety Report 15903346 (Version 2)
Quarter: 2019Q1

REPORT INFORMATION
  Report Type: Spontaneous
  Country: KZ (occurrence: KZ)
  Receive Date: 20190202
  Receipt Date: 20190202
  Transmission Date: 20190417
  Serious: Yes (Death, Other)
  Sender: FDA-Public Use
  Company Number: PHHY2019KZ023985

PATIENT
  Age: 51 Year
  Sex: Male
  Weight: 83.99 kg

DRUGS (6)
  1. DELAMANID [Suspect]
     Active Substance: DELAMANID
     Indication: TUBERCULOSIS
     Dosage: 200 MG, QD
     Route: 065
     Dates: start: 20180314, end: 20181213
  2. AMOXICILLIN, CLAVULANATE [Suspect]
     Active Substance: AMOXICILLIN\CLAVULANATE POTASSIUM
     Indication: TUBERCULOSIS
     Dosage: 2000 MG, QD
     Route: 065
     Dates: start: 20180314, end: 20180320
  3. LINEZOLID. [Suspect]
     Active Substance: LINEZOLID
     Indication: TUBERCULOSIS
     Dosage: 600 MG, QD
     Route: 065
     Dates: start: 20180314
  4. IMIPENEM AND CILASTATIN [Suspect]
     Active Substance: CILASTATIN SODIUM\IMIPENEM
     Indication: TUBERCULOSIS
     Dosage: 2000 MG, QD
     Route: 065
     Dates: start: 20180314, end: 20180320
  5. CLOFAZIMINE [Suspect]
     Active Substance: CLOFAZIMINE
     Indication: TUBERCULOSIS
     Dosage: 200 MG, QD
     Route: 065
     Dates: start: 20180314
  6. BEDAQUILINE [Suspect]
     Active Substance: BEDAQUILINE
     Indication: TUBERCULOSIS
     Dosage: 400 MG, QD
     Route: 065
     Dates: start: 20180314

REACTIONS (10)
  - Portal hypertension [Unknown]
  - Nausea [Unknown]
  - Dizziness [Unknown]
  - Alcohol poisoning [Unknown]
  - Vomiting [Unknown]
  - General physical health deterioration [Unknown]
  - Chronic hepatic failure [Fatal]
  - Hepatic cirrhosis [Unknown]
  - Incorrect product administration duration [Unknown]
  - Asthenia [Unknown]

NARRATIVE: CASE EVENT DATE: 20180830
